FAERS Safety Report 7745815-7 (Version None)
Quarter: 2011Q3

REPORT INFORMATION
  Report Type: 
  Country: None (occurrence: None)
  Receive Date: 20110913
  Receipt Date: 20110905
  Transmission Date: 20111222
  Serious: Yes (Other)
  Sender: FDA-Public Use
  Company Number: JP-AMGEN-JPNSP2011032118

PATIENT
  Age: 84 Year
  Sex: Female

DRUGS (6)
  1. CELECOXIB [Concomitant]
     Dosage: 200 MG, QD
     Dates: start: 20110319
  2. RHEUMATREX [Concomitant]
     Dosage: 8 MG, WEEKLY
     Dates: start: 20110226
  3. BREDININ [Concomitant]
     Dosage: 100 UNK, UNK
     Dates: start: 20110212
  4. ENBREL [Suspect]
     Indication: RHEUMATOID ARTHRITIS
     Dosage: 25 MG, WEEKLY
     Route: 058
     Dates: start: 20110409, end: 20110611
  5. ARIMIDEX [Concomitant]
     Indication: BREAST CANCER
     Dosage: UNK
  6. RHEUMATREX [Concomitant]
     Indication: RHEUMATOID ARTHRITIS
     Dosage: 6 MG, WEEKLY
     Dates: start: 20110207, end: 20110225

REACTIONS (4)
  - LYMPHADENOPATHY [None]
  - MASS [None]
  - ECZEMA [None]
  - RASH [None]
